FAERS Safety Report 6028397-X (Version None)
Quarter: 2009Q1

REPORT INFORMATION
  Report Type: 
  Country: None (occurrence: None)
  Receive Date: 20090106
  Receipt Date: 20090102
  Transmission Date: 20090719
  Serious: Yes (Other)
  Sender: FDA-Public Use
  Company Number: IT-ABBOTT-09P-083-0495754-00

PATIENT
  Age: 26 Year
  Sex: Female

DRUGS (3)
  1. KALETRA [Suspect]
     Indication: DRUG USE FOR UNKNOWN INDICATION
     Dosage: 800/200MG DAILY
     Route: 048
     Dates: start: 20051202, end: 20080402
  2. COMBIVIR [Suspect]
     Indication: DRUG USE FOR UNKNOWN INDICATION
     Dosage: 300/600MG DAILY
     Route: 048
     Dates: start: 20031005, end: 20080402
  3. RALTEGRAVIR [Suspect]
     Indication: DRUG USE FOR UNKNOWN INDICATION
     Route: 048
     Dates: start: 20080329, end: 20080402

REACTIONS (1)
  - ABORTION INDUCED [None]
